FAERS Safety Report 4896857-0 (Version None)
Quarter: 2005Q4

REPORT INFORMATION
  Report Type: 
  Country: None (occurrence: None)
  Receive Date: 20051228
  Receipt Date: 20051011
  Transmission Date: 20060501
  Serious: Yes (Hospitalization)
  Sender: FDA-Public Use
  Company Number: USA0510110584

PATIENT
  Sex: Female

DRUGS (6)
  1. ILETIN I [Suspect]
     Indication: DIABETES MELLITUS
  2. ILETIN [Suspect]
     Indication: DIABETES MELLITUS
  3. HUMULIN N [Suspect]
     Indication: DIABETES MELLITUS
     Dates: start: 20010101
  4. HUMULIN R [Suspect]
     Indication: DIABETES MELLITUS
     Dates: start: 20010101
  5. LANTUS [Concomitant]
  6. NOVOLIN N [Concomitant]

REACTIONS (9)
  - CRYING [None]
  - DIALYSIS [None]
  - DRUG HYPERSENSITIVITY [None]
  - FIBROMYALGIA [None]
  - NERVOUS SYSTEM DISORDER [None]
  - NEUROPATHY [None]
  - PAIN [None]
  - PAIN IN EXTREMITY [None]
  - SKIN REACTION [None]
